FAERS Safety Report 8902519 (Version 1)
Quarter: 2012Q4

REPORT INFORMATION
  Report Type: 
  Country: NZ (occurrence: NZ)
  Receive Date: 20121112
  Receipt Date: 20121112
  Transmission Date: 20130627
  Serious: Yes (Death, Hospitalization, Other)
  Sender: FDA-Public Use
  Company Number: NZ-ROCHE-1116039

PATIENT
  Age: 53 None
  Sex: Female

DRUGS (7)
  1. ACTEMRA [Suspect]
     Indication: STILL^S DISEASE ADULT ONSET
     Route: 042
     Dates: start: 20120627
  2. ACTEMRA [Suspect]
     Route: 042
     Dates: start: 20120726
  3. ACTEMRA [Suspect]
     Route: 042
     Dates: start: 20120907, end: 20120907
  4. PREDNISONE [Concomitant]
     Indication: STILL^S DISEASE ADULT ONSET
     Route: 048
  5. PREDNISONE [Concomitant]
     Route: 048
     Dates: start: 201109, end: 20121004
  6. OMEPRAZOLE [Concomitant]
     Indication: GASTROOESOPHAGEAL REFLUX DISEASE
     Route: 048
     Dates: end: 20121004
  7. NORTRIPTYLINE [Concomitant]
     Indication: INSOMNIA
     Route: 048
     Dates: end: 20121004

REACTIONS (13)
  - Multi-organ failure [Fatal]
  - Sepsis [Fatal]
  - Pulmonary hypertension [Unknown]
  - Chest pain [Recovered/Resolved]
  - Lower respiratory tract infection [Recovered/Resolved]
  - Myalgia [Unknown]
  - Haemoglobin decreased [Unknown]
  - Pneumocystis jiroveci infection [Unknown]
  - Platelet count decreased [Unknown]
  - Oropharyngeal pain [Unknown]
  - Headache [Unknown]
  - Haematocrit decreased [Unknown]
  - Pleural effusion [Unknown]
